FAERS Safety Report 5703306-9 (Version None)
Quarter: 2008Q2

REPORT INFORMATION
  Report Type: 
  Country: None (occurrence: None)
  Receive Date: 20080411
  Receipt Date: 20080401
  Transmission Date: 20081010
  Serious: Yes (Other)
  Sender: FDA-Public Use
  Company Number: US-PFIZER INC-2008020029

PATIENT
  Sex: Male
  Weight: 81.818 kg

DRUGS (11)
  1. LYRICA [Suspect]
     Indication: NEUROPATHY PERIPHERAL
  2. NEXIUM [Concomitant]
     Route: 048
  3. AMBIEN [Concomitant]
     Route: 048
  4. METOPROLOL TARTRATE [Concomitant]
     Route: 048
  5. POTASSIUM CHLORIDE [Concomitant]
     Route: 048
  6. VERAPAMIL [Concomitant]
     Route: 048
  7. ALL OTHER THERAPEUTIC PRODUCTS [Concomitant]
     Route: 048
  8. PRAVACHOL [Concomitant]
     Route: 048
  9. TRICOR [Concomitant]
     Route: 048
  10. WARFARIN SODIUM [Concomitant]
     Route: 048
  11. CELEBREX [Concomitant]
     Route: 048

REACTIONS (4)
  - ANHIDROSIS [None]
  - FEELING HOT [None]
  - FLUSHING [None]
  - PAIN [None]
